FAERS Safety Report 16840321 (Version 1)
Quarter: 2019Q3

REPORT INFORMATION
  Report Type: Spontaneous
  Country: IT (occurrence: IT)
  Receive Date: 20190923
  Receipt Date: 20190923
  Transmission Date: 20191005
  Serious: Yes (Hospitalization)
  Sender: FDA-Public Use
  Company Number: PHHY2019IT218792

PATIENT
  Age: 65 Year
  Sex: Female
  Weight: 64 kg

DRUGS (3)
  1. BEVACIZUMAB. [Concomitant]
     Active Substance: BEVACIZUMAB
     Indication: COLON NEOPLASM
     Dosage: 480 MG, CYCLIC
     Route: 042
     Dates: start: 20190904
  2. OXALIPLATIN. [Suspect]
     Active Substance: OXALIPLATIN
     Indication: COLON CANCER
     Dosage: 220 MG, CYCLIC
     Route: 042
     Dates: start: 20190904
  3. CAPECITABINE. [Concomitant]
     Active Substance: CAPECITABINE
     Indication: COLON NEOPLASM
     Dosage: 500 MG, CYCLIC
     Route: 048
     Dates: start: 20190904

REACTIONS (2)
  - Bronchospasm [Recovering/Resolving]
  - Dyspnoea [Recovering/Resolving]

NARRATIVE: CASE EVENT DATE: 20190904
